FAERS Safety Report 7412293-7 (Version None)
Quarter: 2011Q2

REPORT INFORMATION
  Report Type: 
  Country: None (occurrence: None)
  Receive Date: 20110413
  Receipt Date: 20110404
  Transmission Date: 20111010
  Serious: Yes (Death, Life-Threatening)
  Sender: FDA-Public Use
  Company Number: JP-JNJFOC-20090807374

PATIENT
  Sex: Male
  Weight: 87 kg

DRUGS (57)
  1. VELCADE [Suspect]
     Dosage: 1 CYCLE
     Route: 042
  2. CALONAL [Suspect]
     Indication: PROPHYLAXIS
     Route: 048
  3. VALTREX [Concomitant]
     Dosage: 2-6 DF /DAY
     Route: 048
  4. PURSENNID [Concomitant]
     Indication: PROPHYLAXIS
     Route: 048
  5. LAXOBERON [Concomitant]
     Indication: PROPHYLAXIS
     Route: 048
  6. LAXOBERON [Concomitant]
     Route: 048
  7. MS REISHIPPU [Concomitant]
     Indication: PROPHYLAXIS
     Route: 062
  8. GABAPEN [Concomitant]
     Indication: PROPHYLAXIS
     Route: 048
  9. CEFAMEZIN [Concomitant]
     Indication: PROPHYLAXIS
     Route: 042
  10. VANCOMYCIN [Concomitant]
     Indication: PROPHYLAXIS
     Route: 041
  11. MIXED AMINO ACID CARBOHYDRATE ELECTROLYTE VITAMIN COMBINED DRUG [Concomitant]
     Indication: PROPHYLAXIS
     Route: 041
  12. POTASSIUM CHLORIDE [Concomitant]
     Indication: PROPHYLAXIS
     Route: 042
  13. VELCADE [Suspect]
     Dosage: 2 CYCLE
     Route: 042
  14. MAXIPIME [Concomitant]
     Indication: PROPHYLAXIS
     Route: 042
  15. SAXIZON [Concomitant]
     Route: 042
  16. POLARAMINE [Concomitant]
     Route: 042
  17. OXYCONTIN [Concomitant]
     Indication: PROPHYLAXIS
     Route: 048
  18. XYLOCAINE [Concomitant]
     Indication: PROPHYLAXIS
     Route: 049
  19. BIOFERMIN R [Concomitant]
     Route: 048
  20. LIORESAL [Concomitant]
     Indication: PROPHYLAXIS
     Route: 048
  21. NEU-UP [Concomitant]
     Indication: PROPHYLAXIS
     Route: 042
  22. DEXART [Suspect]
     Route: 042
  23. NEUROTROPIN [Concomitant]
     Route: 048
  24. ZYLORIC [Concomitant]
     Indication: PROPHYLAXIS
     Route: 048
  25. ITRIZOLE [Suspect]
     Indication: PROPHYLAXIS
     Route: 048
  26. VELCADE [Suspect]
     Dosage: 2 CYCLE
     Route: 042
  27. MAXIPIME [Concomitant]
     Route: 042
  28. VALTREX [Concomitant]
     Indication: PROPHYLAXIS
     Route: 048
  29. MEROPENEM [Concomitant]
     Indication: PROPHYLAXIS
     Route: 041
  30. AZUNOL [Concomitant]
     Indication: PROPHYLAXIS
     Route: 061
  31. VELCADE [Suspect]
     Indication: MULTIPLE MYELOMA
     Dosage: 2 CYCLE
     Route: 042
  32. VELCADE [Suspect]
     Dosage: 1 CYCLE
     Route: 042
  33. DECADRON [Concomitant]
     Indication: MULTIPLE MYELOMA
     Route: 048
  34. MAXIPIME [Concomitant]
     Indication: PNEUMONIA
     Route: 042
  35. SAXIZON [Concomitant]
     Route: 042
  36. OMEPRAL [Concomitant]
     Indication: PROPHYLAXIS
     Route: 048
  37. ELASE [Concomitant]
     Indication: PROPHYLAXIS
     Route: 061
  38. CORTRIL [Concomitant]
     Indication: PROPHYLAXIS
     Route: 048
  39. SLOW-K [Concomitant]
     Indication: PROPHYLAXIS
     Route: 048
  40. BIOFERMIN [Concomitant]
     Indication: PROPHYLAXIS
     Route: 048
  41. LASTET S [Concomitant]
     Indication: PROPHYLAXIS
     Route: 048
  42. MAXIPIME [Concomitant]
     Route: 042
  43. POLARAMINE [Concomitant]
     Indication: PROPHYLAXIS
     Route: 042
  44. CRAVIT [Concomitant]
     Indication: PROPHYLAXIS
     Route: 048
  45. ZOMETA [Concomitant]
     Indication: PROPHYLAXIS
     Route: 041
  46. VELCADE [Suspect]
     Dosage: 1 CYCLE
     Route: 042
  47. VELCADE [Suspect]
     Dosage: 1 CYCLE
     Route: 042
  48. SAXIZON [Concomitant]
     Indication: PROPHYLAXIS
     Route: 042
  49. LUPRAC [Concomitant]
     Indication: PROPHYLAXIS
     Route: 048
  50. VELCADE [Suspect]
     Dosage: 2 CYCLE
     Route: 042
  51. DEXART [Suspect]
     Indication: MULTIPLE MYELOMA
     Route: 042
  52. ACYCLOVIR [Concomitant]
     Indication: PROPHYLAXIS
     Route: 041
  53. NOZLEN [Concomitant]
     Indication: PROPHYLAXIS
     Route: 048
  54. RIVOTRIL [Concomitant]
     Indication: PROPHYLAXIS
     Route: 048
  55. LENDORMIN [Concomitant]
     Indication: PROPHYLAXIS
     Route: 048
  56. DEXAMETHASONE [Concomitant]
     Route: 042
  57. OXYNORM [Concomitant]
     Indication: PROPHYLAXIS
     Route: 048

REACTIONS (2)
  - DEATH [None]
  - LIVER DISORDER [None]
